FAERS Safety Report 5718657-1 (Version None)
Quarter: 2008Q2

REPORT INFORMATION
  Report Type: 
  Country: None (occurrence: None)
  Receive Date: 20080425
  Receipt Date: 20080415
  Transmission Date: 20081010
  Serious: Yes (Other)
  Sender: FDA-Public Use
  Company Number: GB-PFIZER INC-2008033761

PATIENT
  Sex: Male

DRUGS (3)
  1. LYRICA [Suspect]
     Indication: PAIN
     Route: 048
     Dates: start: 20080307, end: 20080320
  2. AMITRIPTYLINE HCL [Concomitant]
     Route: 048
     Dates: start: 20071127, end: 20080307
  3. TRAMADOL HCL [Concomitant]
     Route: 048

REACTIONS (2)
  - MOVEMENT DISORDER [None]
  - MUSCLE DISORDER [None]
